FAERS Safety Report 5860747-7 (Version None)
Quarter: 2008Q3

REPORT INFORMATION
  Report Type: 
  Country: None (occurrence: None)
  Receive Date: 20080827
  Receipt Date: 20080122
  Transmission Date: 20090109
  Serious: No
  Sender: FDA-Public Use
  Company Number: US-ABBOTT-07P-163-0423458-00

PATIENT
  Sex: Male
  Weight: 81.72 kg

DRUGS (4)
  1. NIASPAN [Suspect]
     Indication: BLOOD CHOLESTEROL INCREASED
     Route: 048
     Dates: start: 20071102, end: 20071104
  2. NIASPAN [Suspect]
     Route: 048
     Dates: start: 20050101, end: 20071102
  3. METOPROLOL TARTRATE [Concomitant]
     Indication: CARDIOVASCULAR DISORDER
  4. INEGY [Concomitant]
     Indication: BLOOD CHOLESTEROL INCREASED

REACTIONS (2)
  - FLUSHING [None]
  - PRURITUS [None]
